FAERS Safety Report 6216098-4 (Version None)
Quarter: 2009Q2

REPORT INFORMATION
  Report Type: 
  Country: None (occurrence: None)
  Receive Date: 20090603
  Receipt Date: 20090603
  Transmission Date: 20091009
  Serious: Yes (Hospitalization)
  Sender: FDA-Public Use
  Company Number: None

PATIENT
  Sex: Female
  Weight: 56.6996 kg

DRUGS (2)
  1. FOSAMAX [Suspect]
     Indication: OSTEOPOROSIS
     Dosage: NO LONGER USED
     Dates: start: 19990101, end: 20040101
  2. BONIVA [Suspect]
     Indication: OSTEOPOROSIS
     Dosage: 150 MG. ONCER MONTHLY ORAL
     Route: 048
     Dates: start: 20040101, end: 20090101

REACTIONS (3)
  - FEMUR FRACTURE [None]
  - MUSCULAR WEAKNESS [None]
  - PAIN IN EXTREMITY [None]
